FAERS Safety Report 9380531 (Version 2)
Quarter: 2013Q3

REPORT INFORMATION
  Report Type: Spontaneous
  Country: US (occurrence: US)
  Receive Date: 20130702
  Receipt Date: 20130814
  Transmission Date: 20140515
  Serious: No
  Sender: FDA-Public Use
  Company Number: US-BAYER-2013-079256

PATIENT
  Sex: 0

DRUGS (1)
  1. XOFIGO [Suspect]
     Dosage: UNK
     Dates: start: 20130619, end: 20130619

REACTIONS (1)
  - Product measured potency issue [None]
